FAERS Safety Report 8390400-X (Version None)
Quarter: 2012Q2

REPORT INFORMATION
  Report Type: 
  Country: None (occurrence: None)
  Receive Date: 20120529
  Receipt Date: 20120516
  Transmission Date: 20120825
  Serious: Yes (Other)
  Sender: FDA-Public Use
  Company Number: CA-JNJFOC-20120514485

PATIENT
  Sex: Female
  Weight: 108.8 kg

DRUGS (2)
  1. REMICADE [Suspect]
     Indication: CROHN'S DISEASE
     Route: 042
     Dates: start: 20090217
  2. VITAMIN B-12 [Concomitant]
     Route: 065

REACTIONS (2)
  - ARTHRALGIA [None]
  - FAECALOMA [None]
